FAERS Safety Report 8322107-9 (Version None)
Quarter: 2012Q1

REPORT INFORMATION
  Report Type: 
  Country: None (occurrence: None)
  Receive Date: 20120315
  Receipt Date: 20110211
  Transmission Date: 20120608
  Serious: No
  Sender: FDA-Public Use
  Company Number: PHHY2011US13148

PATIENT
  Age: 45 Year
  Sex: Male

DRUGS (5)
  1. VIAGRA [Concomitant]
  2. GILENYA [Suspect]
     Indication: RELAPSING-REMITTING MULTIPLE SCLEROSIS
     Dosage: 0.5 MG, QD, ORAL
     Route: 048
     Dates: start: 20101207, end: 20110120
  3. BACLOFEN [Concomitant]
  4. TAMSULOSIN HCL [Concomitant]
  5. VITAMIN D [Concomitant]

REACTIONS (1)
  - GAIT DISTURBANCE [None]
